FAERS Safety Report 7779091-6 (Version None)
Quarter: 2011Q3

REPORT INFORMATION
  Report Type: 
  Country: None (occurrence: None)
  Receive Date: 20110926
  Receipt Date: 20110920
  Transmission Date: 20111222
  Serious: Yes (Life-Threatening, Hospitalization, Other)
  Sender: FDA-Public Use
  Company Number: JP-CELGENEUS-087-21880-11020303

PATIENT
  Sex: Female

DRUGS (16)
  1. REVLIMID [Suspect]
     Indication: MULTIPLE MYELOMA
     Dosage: 10 MILLIGRAM
     Route: 048
     Dates: start: 20101220, end: 20110109
  2. LOXOPROFEN [Concomitant]
     Indication: ILL-DEFINED DISORDER
     Dosage: 2 DOSAGE FORMS
     Route: 048
     Dates: start: 20101012
  3. SENNOSIDE [Concomitant]
     Indication: CONSTIPATION
     Dosage: 48 MILLIGRAM
     Route: 048
     Dates: start: 20110110
  4. ACETAMINOPHEN [Concomitant]
     Indication: ILL-DEFINED DISORDER
     Dosage: 1600 MILLIGRAM
     Route: 048
     Dates: start: 20110114
  5. PROCHLORPERAZINE [Concomitant]
     Indication: PROPHYLAXIS
     Dosage: 15 MILLIGRAM
     Route: 048
     Dates: start: 20101209
  6. RABEPRAZOLE SODIUM [Concomitant]
     Indication: PROPHYLAXIS
     Dosage: 10 MILLIGRAM
     Route: 048
     Dates: start: 20101012
  7. MAGNESIUM OXIDE [Concomitant]
     Indication: CONSTIPATION
     Dosage: 1.5 GRAM
     Route: 048
     Dates: start: 20101215
  8. OXINORM [Concomitant]
     Indication: ILL-DEFINED DISORDER
     Route: 048
     Dates: start: 20101206
  9. RED CELLS CONCENTRATES-LEUKOCYTES REDUCED [Concomitant]
     Indication: ILL-DEFINED DISORDER
     Dosage: 2 UNITS
     Route: 041
     Dates: start: 20101221, end: 20110113
  10. OXYCONTIN [Concomitant]
     Indication: ILL-DEFINED DISORDER
     Dosage: 40 MILLIGRAM
     Route: 048
     Dates: start: 20101206, end: 20110109
  11. OXYCONTIN [Concomitant]
     Dosage: 80 MILLIGRAM
     Route: 048
     Dates: start: 20110110
  12. FLURBIPROFEN [Concomitant]
     Indication: ILL-DEFINED DISORDER
     Dosage: 50 MILLIGRAM
     Route: 041
     Dates: start: 20110110, end: 20110110
  13. VITAMEDIN [Concomitant]
     Indication: PROPHYLAXIS
     Dosage: 1 DOSAGE FORMS
     Route: 041
     Dates: start: 20110110
  14. DEXAMETHASONE [Suspect]
     Indication: MULTIPLE MYELOMA
     Dosage: 20 MILLIGRAM
     Route: 048
     Dates: start: 20101220, end: 20110113
  15. TEPRENONE [Concomitant]
     Indication: PROPHYLAXIS
     Dosage: 100 MILLIGRAM
     Route: 048
     Dates: start: 20101012
  16. BERBERON [Concomitant]
     Indication: CONSTIPATION
     Route: 048
     Dates: start: 20101215, end: 20110110

REACTIONS (4)
  - INTERSTITIAL LUNG DISEASE [None]
  - BLOOD ALKALINE PHOSPHATASE INCREASED [None]
  - BLOOD BILIRUBIN INCREASED [None]
  - HYPOKALAEMIA [None]
